FAERS Safety Report 12962367 (Version 1)
Quarter: 2016Q4

REPORT INFORMATION
  Report Type: Spontaneous
  Country: JP (occurrence: JP)
  Receive Date: 20161121
  Receipt Date: 20161121
  Transmission Date: 20170207
  Serious: Yes (Death)
  Sender: FDA-Public Use
  Company Number: JP-ASTRAZENECA-2016SF24011

PATIENT
  Age: 76 Year
  Sex: Female

DRUGS (1)
  1. MEROPEN [Suspect]
     Active Substance: MEROPENEM
     Route: 041
     Dates: start: 201411

REACTIONS (1)
  - Toxic epidermal necrolysis [Fatal]
